FAERS Safety Report 10145716 (Version 2)
Quarter: 2014Q2

REPORT INFORMATION
  Report Type: Report from Study
  Country: JP (occurrence: JP)
  Receive Date: 20140501
  Receipt Date: 20140501
  Transmission Date: 20141212
  Serious: Yes (Death)
  Sender: FDA-Public Use
  Company Number: PHHY2014JP017189

PATIENT
  Sex: Male
  Weight: 60 kg

DRUGS (4)
  1. INDACATEROL [Suspect]
     Indication: CHRONIC OBSTRUCTIVE PULMONARY DISEASE
     Dosage: 150 UG, DAILY
     Route: 055
     Dates: start: 20130328
  2. INDACATEROL [Suspect]
     Indication: EMPHYSEMA
  3. PREMINENT [Concomitant]
     Indication: HYPERTENSION
     Dosage: UNK UKN, UNK
     Route: 048
  4. UNIPHYLLA [Concomitant]
     Indication: CHRONIC OBSTRUCTIVE PULMONARY DISEASE
     Dosage: 400 MG, UNK
     Route: 048
     Dates: start: 20130328

REACTIONS (2)
  - Thyroid cancer [Fatal]
  - Malignant neoplasm progression [Fatal]
